FAERS Safety Report 12840247 (Version 2)
Quarter: 2018Q1

REPORT INFORMATION
  Report Type: Report from Study
  Country: US (occurrence: US)
  Receive Date: 20161012
  Receipt Date: 20180103
  Transmission Date: 20180508
  Serious: Yes (Other)
  Sender: FDA-Public Use
  Company Number: PHEH2016US026209

PATIENT
  Sex: Male

DRUGS (2)
  1. TEGRETOL [Suspect]
     Active Substance: CARBAMAZEPINE
     Indication: PRODUCT USED FOR UNKNOWN INDICATION
     Dosage: UNK
     Route: 065
  2. CARBAMAZEPINE. [Suspect]
     Active Substance: CARBAMAZEPINE
     Indication: PRODUCT USED FOR UNKNOWN INDICATION
     Route: 065

REACTIONS (2)
  - Drug ineffective [Unknown]
  - Seizure [Not Recovered/Not Resolved]
